FAERS Safety Report 9182622 (Version 1)
Quarter: 2013Q1

REPORT INFORMATION
  Report Type: Spontaneous
  Country: US (occurrence: US)
  Receive Date: 20130322
  Receipt Date: 20130322
  Transmission Date: 20140127
  Serious: No
  Sender: FDA-Public Use
  Company Number: US-BRISTOL-MYERS SQUIBB COMPANY-16851693

PATIENT
  Age: 60 Year
  Sex: Female

DRUGS (2)
  1. ERBITUX [Suspect]
     Indication: RECTAL CANCER
     Dosage: 400 MG ON DAY1, 250 MG ON DAY 8,15,22
     Route: 042
     Dates: start: 20120731
  2. OXYBUTYNIN [Concomitant]

REACTIONS (2)
  - Dermatitis acneiform [Recovering/Resolving]
  - Lip dry [Unknown]
